FAERS Safety Report 7607652-3 (Version None)
Quarter: 2011Q3

REPORT INFORMATION
  Report Type: 
  Country: None (occurrence: None)
  Receive Date: 20110713
  Receipt Date: 20110505
  Transmission Date: 20111222
  Serious: Yes (Hospitalization)
  Sender: FDA-Public Use
  Company Number: PHHO2011GB08340

PATIENT
  Sex: Male
  Weight: 84 kg

DRUGS (4)
  1. DOCETAXEL [Concomitant]
     Indication: METASTASES TO BONE
     Dosage: UNK
     Dates: start: 20100909, end: 20110318
  2. PREDNISOLONE [Concomitant]
     Indication: METASTASES TO BONE
     Dosage: UNK
     Dates: start: 20100909, end: 20110404
  3. ZOLEDRONIC [Suspect]
     Indication: METASTASES TO BONE
     Dosage: UNK
     Route: 042
     Dates: start: 20100909, end: 20110318
  4. STRONTIUM CHLORIDE SR-89 [Concomitant]
     Indication: METASTASES TO BONE
     Dosage: UNK

REACTIONS (1)
  - PULMONARY EMBOLISM [None]
